FAERS Safety Report 9883310 (Version 2)
Quarter: 2014Q1

REPORT INFORMATION
  Report Type: Spontaneous
  Country: US (occurrence: US)
  Receive Date: 20140210
  Receipt Date: 20140306
  Transmission Date: 20141002
  Serious: Yes (Death)
  Sender: FDA-Public Use
  Company Number: US-AMGEN-USASP2014008244

PATIENT
  Age: 82 Year
  Sex: Male
  Weight: 63.49 kg

DRUGS (14)
  1. PROCRIT [Suspect]
     Indication: BLOOD COUNT ABNORMAL
     Dosage: 40000 UNITS/ML, QWK
     Route: 065
     Dates: start: 20140105
  2. PROCRIT [Suspect]
     Indication: RENAL FAILURE CHRONIC
  3. PROCRIT [Suspect]
     Indication: ANAEMIA
  4. MORPHINE [Concomitant]
     Indication: PAIN
     Dosage: UNK
  5. FUROSEMIDE [Concomitant]
     Dosage: 20 MG, QD
     Route: 048
  6. IMDUR [Concomitant]
     Indication: HYPERTENSION
     Dosage: 30 MG, QD
     Route: 048
  7. PROTONIX [Concomitant]
     Indication: GASTROOESOPHAGEAL REFLUX DISEASE
     Dosage: 40 MG, QD
     Route: 048
  8. SODIUM FERRIC GLUCONATE COMPLEX IN SUCROSE [Concomitant]
     Dosage: UNK
     Route: 042
  9. CIPROFLOXACIN [Concomitant]
     Dosage: 500 MG, BID
     Route: 048
  10. METOPROLOL TARTRATE [Concomitant]
     Indication: HYPERTENSION
     Dosage: UNK UNK, BID
     Route: 048
  11. PRAVASTATIN [Concomitant]
     Indication: BLOOD CHOLESTEROL INCREASED
     Dosage: 80 MG, AT BEDTIME
     Route: 048
  12. FLAGYL                             /00012501/ [Concomitant]
     Dosage: 500 MG, EVERY 12 HOURS
     Route: 048
  13. MORPHINE SULPHATE [Concomitant]
     Indication: PAIN
     Dosage: EVERY 4 HOURS AS NEEDED
  14. MIRTAZAPINE [Concomitant]
     Dosage: UNK

REACTIONS (4)
  - Colorectal cancer [Fatal]
  - Acute myocardial infarction [Fatal]
  - Chest pain [Unknown]
  - Cardiac disorder [Unknown]
